FAERS Safety Report 10152391 (Version 1)
Quarter: 2014Q2

REPORT INFORMATION
  Report Type: Report from Study
  Country: DE (occurrence: None)
  Receive Date: 20140501
  Receipt Date: 20140501
  Transmission Date: 20141212
  Serious: Yes (Other)
  Sender: FDA-Public Use
  Company Number: 2014-19443

PATIENT
  Age: 84 Year
  Sex: Female

DRUGS (1)
  1. EYLEA (AFLIBERCEPT) INJECTION)AFLIBERCEPT) [Suspect]
     Indication: AGE-RELATED MACULAR DEGENERATION
     Dosage: 2 MG, MILLIGRAM(S), EEVERY 4 WEEKS, INTRAOCULAR?
     Route: 031
     Dates: start: 20130115

REACTIONS (4)
  - Eye disorder [None]
  - Off label use [None]
  - Unevaluable event [None]
  - Macular oedema [None]
